FAERS Safety Report 17948724 (Version 2)
Quarter: 2020Q2

REPORT INFORMATION
  Report Type: Spontaneous
  Country: US (occurrence: US)
  Receive Date: 20200625
  Receipt Date: 20200625
  Transmission Date: 20200714
  Serious: No
  Sender: FDA-Public Use
  Company Number: US-NOVOPROD-730769

PATIENT
  Sex: Female
  Weight: 53.06 kg

DRUGS (2)
  1. OZEMPIC [Suspect]
     Active Substance: SEMAGLUTIDE
     Indication: TYPE 2 DIABETES MELLITUS
     Dosage: 0.5 MG
     Route: 058
  2. OZEMPIC [Suspect]
     Active Substance: SEMAGLUTIDE
     Indication: TYPE 2 DIABETES MELLITUS
     Dosage: 0.5 MG
     Route: 058
     Dates: start: 201901

REACTIONS (5)
  - Abdominal distension [Recovered/Resolved]
  - Intentional product misuse [Unknown]
  - Constipation [Recovered/Resolved]
  - Weight increased [Recovered/Resolved]
  - Intentional product misuse [Unknown]

NARRATIVE: CASE EVENT DATE: 20200520
